FAERS Safety Report 16336391 (Version 1)
Quarter: 2019Q2

REPORT INFORMATION
  Report Type: Spontaneous
  Country: CA (occurrence: CA)
  Receive Date: 20190521
  Receipt Date: 20190521
  Transmission Date: 20190711
  Serious: Yes (Death)
  Sender: FDA-Public Use
  Company Number: CA-CELLTRION INC.-2019CA020711

PATIENT

DRUGS (1)
  1. INFLECTRA [Suspect]
     Active Substance: INFLIXIMAB-DYYB
     Indication: COLITIS ULCERATIVE
     Dosage: 300 MG,(Q 0, 2, 6WEEKS, THEN EVERY 8 WEEKS)
     Route: 042
     Dates: start: 20190402, end: 201904

REACTIONS (1)
  - Death [Fatal]

NARRATIVE: CASE EVENT DATE: 20190505
